FAERS Safety Report 9227606 (Version 2)
Quarter: 2013Q2

REPORT INFORMATION
  Report Type: Spontaneous
  Country: JP (occurrence: JP)
  Receive Date: 20130412
  Receipt Date: 20130418
  Transmission Date: 20140414
  Serious: Yes (Death, Other)
  Sender: FDA-Public Use
  Company Number: JP-OTSUKA-JP-2013-10922

PATIENT
  Age: 75 Year
  Sex: Female

DRUGS (5)
  1. SAMSCA [Suspect]
     Indication: CARDIAC FAILURE CHRONIC
     Dosage: UNK
     Route: 048
  2. DOBUTAMINE [Concomitant]
     Route: 041
  3. DOBUTAMINE [Concomitant]
     Route: 041
  4. FUROSEMIDE [Concomitant]
     Route: 048
  5. CARPERITIDE [Concomitant]
     Route: 042

REACTIONS (2)
  - Pneumonia staphylococcal [Fatal]
  - Cardiac failure [Unknown]
